FAERS Safety Report 13983759 (Version 2)
Quarter: 2017Q3

REPORT INFORMATION
  Report Type: Report from Study
  Country: FR (occurrence: FR)
  Receive Date: 20170918
  Receipt Date: 20170920
  Transmission Date: 20171128
  Serious: Yes (Life-Threatening, Hospitalization)
  Sender: FDA-Public Use
  Company Number: FR-ROCHE-1696804

PATIENT
  Age: 54 Year
  Sex: Male
  Weight: 62 kg

DRUGS (17)
  1. BROMAZEPAM [Concomitant]
     Active Substance: BROMAZEPAM
     Indication: ANXIETY
     Route: 065
     Dates: start: 20160106
  2. SOLUPRED (FRANCE) [Concomitant]
     Active Substance: PREDNISOLONE
     Indication: LARYNGOSPASM
     Route: 065
     Dates: start: 20160106, end: 20160106
  3. BEVACIZUMAB. [Suspect]
     Active Substance: BEVACIZUMAB
     Indication: COLORECTAL CANCER METASTATIC
     Dosage: MOST RECENT DOSE PRIOR TO SAE- 06/JAN/2016 AT 1015  310 MG
     Route: 042
     Dates: start: 20150928
  4. FERO-GRAD VITAMINE C [Concomitant]
     Route: 065
  5. OXALIPLATIN. [Suspect]
     Active Substance: OXALIPLATIN
     Indication: COLORECTAL CANCER METASTATIC
     Dosage: LAST DOSE PRIOR TO AE: 06/JAN/2016 AT 1100 146.2 MG
     Route: 042
     Dates: start: 20150928, end: 20160106
  6. DICODIN [Concomitant]
     Active Substance: DIHYDROCODEINE
     Indication: DIARRHOEA
     Route: 065
     Dates: start: 20151124, end: 2016
  7. AERIUS [Concomitant]
     Active Substance: DESLORATADINE
     Indication: LARYNGOSPASM
     Route: 065
     Dates: start: 20160106, end: 20160106
  8. LARGACTIL [Concomitant]
     Active Substance: CHLORPROMAZINE
     Indication: HICCUPS
     Route: 065
     Dates: start: 20151124, end: 2016
  9. DOLIPRANE [Concomitant]
     Active Substance: ACETAMINOPHEN
     Indication: LARYNGOSPASM
     Route: 065
     Dates: start: 20160106, end: 20160106
  10. PAROXETINE. [Concomitant]
     Active Substance: PAROXETINE
     Indication: ANXIETY
     Route: 065
     Dates: start: 20160106
  11. FLUOROURACIL. [Suspect]
     Active Substance: FLUOROURACIL
     Indication: COLORECTAL CANCER METASTATIC
     Dosage: LAST DOSE PRIOR TO AE: 06/JAN/2016 AT 1100 4128 MG
     Route: 042
     Dates: start: 20150928, end: 20160106
  12. FOLINIC ACID [Suspect]
     Active Substance: LEUCOVORIN
     Indication: COLORECTAL CANCER METASTATIC
     Dosage: LAST DOSE PRIOR TO AE: 06/JAN/2016 AT 1100
     Route: 042
     Dates: start: 20150928, end: 20160106
  13. DAFALGAN CODEINE [Concomitant]
     Active Substance: ACETAMINOPHEN\CODEINE PHOSPHATE
     Indication: ABDOMINAL PAIN
     Route: 065
     Dates: start: 201512, end: 2016
  14. CHOLECALCIFEROL [Concomitant]
     Active Substance: CHOLECALCIFEROL
     Route: 065
  15. ESOMEPRAZOLE [Concomitant]
     Active Substance: ESOMEPRAZOLE
     Indication: HICCUPS
     Route: 065
     Dates: start: 20151124, end: 2016
  16. METEOSPASMYL [Concomitant]
     Active Substance: ALVERINE CITRATE\DIMETHICONE
     Route: 065
  17. UVEDOSE [Concomitant]
     Active Substance: CHOLECALCIFEROL
     Dosage: 1 AMPULE
     Route: 065

REACTIONS (1)
  - Peritonitis [Recovered/Resolved]

NARRATIVE: CASE EVENT DATE: 20160109
